FAERS Safety Report 6382613-3 (Version None)
Quarter: 2009Q3

REPORT INFORMATION
  Report Type: 
  Country: None (occurrence: None)
  Receive Date: 20090924
  Receipt Date: 20090414
  Transmission Date: 20100115
  Serious: Yes (Other)
  Sender: FDA-Public Use
  Company Number: WAES 0904USA02092

PATIENT
  Age: 49 Year
  Sex: Male

DRUGS (3)
  1. VYTORIN 10-40 MG        VYTORIN 10-80 MG [Suspect]
     Indication: BLOOD CHOLESTEROL
     Dosage: 10-40MG/DAILY/PO; 10-80 MG/DAILY/PO
     Route: 048
     Dates: start: 20071201, end: 20080101
  2. VYTORIN 10-40 MG        VYTORIN 10-80 MG [Suspect]
     Indication: BLOOD CHOLESTEROL
     Dosage: 10-40MG/DAILY/PO; 10-80 MG/DAILY/PO
     Route: 048
     Dates: start: 20071001
  3. ............. [Concomitant]

REACTIONS (1)
  - PANCREATITIS [None]
